FAERS Safety Report 5067497-8 (Version None)
Quarter: 2006Q3

REPORT INFORMATION
  Report Type: 
  Country: None (occurrence: None)
  Receive Date: 20060713
  Receipt Date: 20060215
  Transmission Date: 20061208
  Serious: Yes (Other)
  Sender: FDA-Public Use
  Company Number: 240916

PATIENT
  Age: 56 Year
  Sex: Female
  Weight: 57.6 kg

DRUGS (4)
  1. ACTIVELLA [Suspect]
     Indication: MENOPAUSAL SYMPTOMS
     Dosage: ORAL
     Route: 048
     Dates: start: 20010101, end: 20030101
  2. PREMPRO [Suspect]
     Indication: MENOPAUSAL SYMPTOMS
     Dates: start: 19980101, end: 20010101
  3. PREMARIN [Suspect]
     Indication: MENOPAUSAL SYMPTOMS
     Dates: start: 19920101, end: 19980101
  4. PROVERA [Suspect]
     Indication: MENOPAUSAL SYMPTOMS
     Dates: start: 19980101, end: 19980101

REACTIONS (1)
  - BREAST CANCER IN SITU [None]
